FAERS Safety Report 24275455 (Version 1)
Quarter: 2024Q3

REPORT INFORMATION
  Report Type: Spontaneous
  Country: NO (occurrence: NO)
  Receive Date: 20240903
  Receipt Date: 20240903
  Transmission Date: 20241016
  Serious: Yes (Other)
  Sender: AMGEN
  Company Number: NO-PFIZER INC-PV202400111705

PATIENT
  Age: 5 Decade
  Sex: Female

DRUGS (1)
  1. ENBREL [Suspect]
     Active Substance: BENZYL ALCOHOL\ETANERCEPT
     Indication: Psoriasis
     Dosage: UNK
     Route: 065
     Dates: start: 2024

REACTIONS (2)
  - Neuropathy peripheral [Unknown]
  - Hyperaesthesia [Unknown]
